FAERS Safety Report 7436044-5 (Version None)
Quarter: 2011Q2

REPORT INFORMATION
  Report Type: 
  Country: None (occurrence: None)
  Receive Date: 20110418
  Receipt Date: 20110331
  Transmission Date: 20111010
  Serious: Yes (Life-Threatening)
  Sender: FDA-Public Use
  Company Number: 2009000224

PATIENT
  Age: 64 Year
  Sex: Female
  Weight: 52 kg

DRUGS (9)
  1. RINDERON (BETAMETHASONE) [Concomitant]
  2. ZONISAMIDE [Concomitant]
  3. ALEVIATIN (PHENYTOIN) [Concomitant]
  4. ERLOTINIB HYDROCHLORIDE [Suspect]
     Indication: LUNG ADENOCARCINOMA
     Dosage: (150 MG,QD),ORAL
     Route: 048
     Dates: start: 20080917, end: 20081007
  5. BLOPRESS (CANDESARTAN CILEXETIL) [Concomitant]
  6. GABAPENTIN [Concomitant]
  7. TAKEPRON (LANSOPRAZOLE) [Concomitant]
  8. PAXIL [Concomitant]
  9. MAGNESIUM OXIDE (MAGNESIUM OXIDE) [Concomitant]

REACTIONS (1)
  - INFLAMMATORY CARCINOMA OF THE BREAST [None]
